FAERS Safety Report 7505883-4 (Version None)
Quarter: 2011Q2

REPORT INFORMATION
  Report Type: 
  Country: None (occurrence: None)
  Receive Date: 20110526
  Receipt Date: 20110509
  Transmission Date: 20111010
  Serious: Yes (Other)
  Sender: FDA-Public Use
  Company Number: US-BAYER-201036369NA

PATIENT
  Age: 17 Year
  Sex: Female
  Weight: 72.562 kg

DRUGS (11)
  1. PONSTEL [Concomitant]
     Dosage: UNK
     Dates: start: 20050601
  2. NSAID'S [Concomitant]
  3. ZOFRAN [Concomitant]
     Dosage: UNK
     Dates: start: 20050605
  4. DARVOCET [Concomitant]
     Dosage: UNK
     Dates: start: 20050101
  5. YAZ [Suspect]
     Indication: PRODUCT USED FOR UNKNOWN INDICATION
     Dosage: UNK
     Route: 048
     Dates: start: 20040101, end: 20070101
  6. VERSED [Concomitant]
     Dosage: UNK
     Dates: start: 20050605
  7. ROBINOL [Concomitant]
     Dosage: UNK
     Dates: start: 20050605
  8. REGLAN [Concomitant]
     Dosage: UNK
     Dates: start: 20050605
  9. YASMIN [Suspect]
     Indication: PRODUCT USED FOR UNKNOWN INDICATION
     Dosage: UNK
     Route: 048
     Dates: start: 20040101, end: 20070101
  10. MORPHINE [Concomitant]
     Dosage: UNK
     Dates: start: 20050605
  11. VICOPROFEN [Concomitant]
     Dosage: UNK
     Dates: start: 20050101

REACTIONS (2)
  - UNEVALUABLE EVENT [None]
  - UTERINE HAEMORRHAGE [None]
